FAERS Safety Report 7388546-8 (Version None)
Quarter: 2011Q2

REPORT INFORMATION
  Report Type: 
  Country: None (occurrence: None)
  Receive Date: 20110401
  Receipt Date: 20110328
  Transmission Date: 20111010
  Serious: Yes (Other)
  Sender: FDA-Public Use
  Company Number: US-PFIZER INC-2011062950

PATIENT
  Sex: Female
  Weight: 78.005 kg

DRUGS (2)
  1. CHANTIX [Suspect]
     Dosage: 0.5 MG, 2X/DAY
  2. CHANTIX [Suspect]
     Indication: SMOKING CESSATION THERAPY
     Dosage: 0.5 MG, 1X/DAY
     Route: 048
     Dates: start: 20110301

REACTIONS (3)
  - NERVOUS SYSTEM DISORDER [None]
  - GAIT DISTURBANCE [None]
  - PAIN [None]
